FAERS Safety Report 20828413 (Version 1)
Quarter: 2022Q2

REPORT INFORMATION
  Report Type: Spontaneous
  Country: US (occurrence: US)
  Receive Date: 20220513
  Receipt Date: 20220513
  Transmission Date: 20220721
  Serious: No
  Sender: FDA-Public Use
  Company Number: US-SA-SAC20220506000856

PATIENT
  Sex: Female

DRUGS (2)
  1. DUPIXENT [Suspect]
     Active Substance: DUPILUMAB
     Dosage: 300 MG, QOW
     Route: 058
  2. DUPIXENT [Suspect]
     Active Substance: DUPILUMAB
     Dosage: UNK UNK, QD

REACTIONS (8)
  - Burning sensation [Unknown]
  - Acne [Unknown]
  - Skin discolouration [Unknown]
  - Dry skin [Unknown]
  - Pruritus [Unknown]
  - Scratch [Unknown]
  - Rash [Unknown]
  - Dry eye [Unknown]
